FAERS Safety Report 17813652 (Version 4)
Quarter: 2020Q3

REPORT INFORMATION
  Report Type: Report from Study
  Country: US (occurrence: US)
  Receive Date: 20200521
  Receipt Date: 20200701
  Transmission Date: 20201102
  Serious: Yes (Other)
  Sender: FDA-Public Use
  Company Number: US-BAYER-2020-090297

PATIENT
  Age: 45 Year
  Sex: Female
  Weight: 88.44 kg

DRUGS (11)
  1. BISACODYL. [Concomitant]
     Active Substance: BISACODYL
     Dosage: UNK
  2. STIVARGA [Suspect]
     Active Substance: REGORAFENIB
     Indication: COLON CANCER
     Dosage: 160 MG DAILY FOR 21 OF 28 DAYS
     Route: 048
     Dates: start: 20200512, end: 20200523
  3. METOPROLOL TARTRATE. [Concomitant]
     Active Substance: METOPROLOL TARTRATE
     Dosage: UNK
  4. LEVOTHYROXINE. [Concomitant]
     Active Substance: LEVOTHYROXINE
     Dosage: UNK
  5. ROPINIROLE. [Concomitant]
     Active Substance: ROPINIROLE
     Dosage: UNK
  6. SYNTHROID [Concomitant]
     Active Substance: LEVOTHYROXINE SODIUM
     Dosage: UNK
  7. PROBIOTIC [BIFIDOBACTERIUM INFANTIS;LACTOBACILLUS ACIDOPHILUS] [Concomitant]
     Dosage: UNK
  8. ELIQUIS [Concomitant]
     Active Substance: APIXABAN
     Dosage: UNK
  9. GAVILYTE N [Concomitant]
     Dosage: UNK
  10. OMEPRAZOLE. [Concomitant]
     Active Substance: OMEPRAZOLE
     Dosage: UNK
  11. OLANZAPINE. [Concomitant]
     Active Substance: OLANZAPINE
     Dosage: UNK

REACTIONS (5)
  - Neuropathy peripheral [None]
  - Pyrexia [None]
  - Illness [Unknown]
  - Blister [None]
  - Pyrexia [Unknown]

NARRATIVE: CASE EVENT DATE: 20200515
